FAERS Safety Report 18523449 (Version 2)
Quarter: 2020Q4

REPORT INFORMATION
  Report Type: Spontaneous
  Country: US (occurrence: US)
  Receive Date: 20201119
  Receipt Date: 20201215
  Transmission Date: 20210114
  Serious: No
  Sender: FDA-Public Use
  Company Number: US-SA-2020SA320449

PATIENT

DRUGS (8)
  1. TOPICORT [Concomitant]
     Active Substance: DESOXIMETASONE
  2. DUPIXENT [Suspect]
     Active Substance: DUPILUMAB
     Indication: DERMATITIS ATOPIC
     Dosage: 300 MG, QOW
     Route: 058
     Dates: end: 20201110
  3. IBUPROFEN. [Concomitant]
     Active Substance: IBUPROFEN
  4. OTEZLA [Concomitant]
     Active Substance: APREMILAST
  5. TEMOVATE [Concomitant]
     Active Substance: CLOBETASOL PROPIONATE
  6. KENALOG [Concomitant]
     Active Substance: TRIAMCINOLONE ACETONIDE
  7. PROTOPIC [Concomitant]
     Active Substance: TACROLIMUS
  8. LEVONORGESTREL AND ETHINYL ESTRADIOL [Concomitant]
     Active Substance: ETHINYL ESTRADIOL\LEVONORGESTREL

REACTIONS (4)
  - Diarrhoea [Unknown]
  - Injection site reaction [Unknown]
  - Nausea [Recovering/Resolving]
  - Headache [Recovering/Resolving]

NARRATIVE: CASE EVENT DATE: 20201110
